FAERS Safety Report 23657922 (Version 4)
Quarter: 2024Q2

REPORT INFORMATION
  Report Type: Report from Study
  Country: US (occurrence: US)
  Receive Date: 20240321
  Receipt Date: 20240520
  Transmission Date: 20240716
  Serious: Yes (Hospitalization, Other)
  Sender: FDA-Public Use
  Company Number: US-TAKEDA-2024TUS019143

PATIENT
  Age: 70 Year
  Sex: Male

DRUGS (8)
  1. FRUQUINTINIB [Suspect]
     Active Substance: FRUQUINTINIB
     Indication: Colon cancer
     Dosage: 5 MILLIGRAM
     Route: 048
     Dates: start: 202401
  2. FRUQUINTINIB [Suspect]
     Active Substance: FRUQUINTINIB
     Indication: Metastases to liver
     Dosage: 5 MILLIGRAM
     Route: 048
     Dates: start: 20240223
  3. FRUQUINTINIB [Suspect]
     Active Substance: FRUQUINTINIB
     Indication: Cholangiocarcinoma
     Dosage: 5 MILLIGRAM
     Route: 048
  4. FRUQUINTINIB [Suspect]
     Active Substance: FRUQUINTINIB
     Indication: Retroperitoneal cancer
     Dosage: 3 MILLIGRAM, QD
     Route: 048
  5. FRUQUINTINIB [Suspect]
     Active Substance: FRUQUINTINIB
     Indication: Malignant peritoneal neoplasm
  6. FRUQUINTINIB [Suspect]
     Active Substance: FRUQUINTINIB
     Indication: Lung neoplasm malignant
  7. AMLODIPINE [Concomitant]
     Active Substance: AMLODIPINE BESYLATE
     Dosage: UNK
     Route: 065
  8. LISINOPRIL [Concomitant]
     Active Substance: LISINOPRIL
     Dosage: UNK
     Route: 065

REACTIONS (12)
  - Gastrointestinal haemorrhage [Recovering/Resolving]
  - Aspiration pleural cavity [Unknown]
  - Pyrexia [Recovered/Resolved]
  - Sinus disorder [Unknown]
  - Abdominal discomfort [Unknown]
  - Gait disturbance [Recovered/Resolved]
  - Weight increased [Recovered/Resolved]
  - Liver disorder [Not Recovered/Not Resolved]
  - Pain in extremity [Unknown]
  - Abdominal pain [Unknown]
  - Blood pressure increased [Unknown]
  - Decreased appetite [Recovered/Resolved]

NARRATIVE: CASE EVENT DATE: 20240223
